FAERS Safety Report 13829575 (Version 1)
Quarter: 2017Q3

REPORT INFORMATION
  Report Type: Spontaneous
  Country: CZ (occurrence: CZ)
  Receive Date: 20170803
  Receipt Date: 20170803
  Transmission Date: 20171127
  Serious: Yes (Life-Threatening, Hospitalization, Other)
  Sender: FDA-Public Use
  Company Number: CZ-ELI_LILLY_AND_COMPANY-CZ201707012131

PATIENT
  Age: 63 Year
  Sex: Female

DRUGS (7)
  1. SPIROPENT [Suspect]
     Active Substance: CLENBUTEROL HYDROCHLORIDE
     Indication: SUICIDE ATTEMPT
     Dosage: UNK UNK, UNKNOWN
     Route: 065
     Dates: start: 20141231, end: 20141231
  2. METFIREX [Suspect]
     Active Substance: METFORMIN HYDROCHLORIDE
     Indication: SUICIDE ATTEMPT
     Dosage: 20 DF, SINGLE
     Route: 065
     Dates: start: 20141231, end: 20141231
  3. SIOFOR [Suspect]
     Active Substance: METFORMIN HYDROCHLORIDE
     Indication: SUICIDE ATTEMPT
     Dosage: 500 MG, DAILY
     Route: 065
     Dates: start: 20141231, end: 20141231
  4. HUMALOG [Suspect]
     Active Substance: INSULIN LISPRO
     Indication: SUICIDE ATTEMPT
     Dosage: 200 UG, BID
     Route: 065
     Dates: start: 20141231, end: 20141231
  5. CIPRALEX [Suspect]
     Active Substance: ESCITALOPRAM OXALATE
     Indication: SUICIDE ATTEMPT
     Dosage: 20 MG, DAILY
     Route: 065
     Dates: start: 20141231, end: 20141231
  6. SPIROPENT [Suspect]
     Active Substance: CLENBUTEROL HYDROCHLORIDE
     Dosage: 20 MG, DAILY
     Route: 065
     Dates: start: 20141231, end: 20141231
  7. ROBITUSSIN COUGH LONG-ACTING [Suspect]
     Active Substance: DEXTROMETHORPHAN HYDROBROMIDE
     Indication: SUICIDE ATTEMPT
     Dosage: 100 ML, SINGLE
     Route: 065
     Dates: start: 20141231, end: 20141231

REACTIONS (3)
  - Overdose [Unknown]
  - Suicide attempt [Unknown]
  - Intentional product misuse [Unknown]

NARRATIVE: CASE EVENT DATE: 20141231
